FAERS Safety Report 9676982 (Version 1)
Quarter: 2013Q4

REPORT INFORMATION
  Report Type: Report from Study
  Country: US (occurrence: US)
  Receive Date: 20131108
  Receipt Date: 20131108
  Transmission Date: 20140711
  Serious: Yes (Other)
  Sender: FDA-Public Use
  Company Number: US-ROCHE-1298089

PATIENT
  Sex: Female

DRUGS (3)
  1. XELODA [Suspect]
     Indication: NEOPLASM MALIGNANT
     Route: 065
  2. XELODA [Suspect]
     Indication: BREAST CANCER
  3. KADCYLA [Suspect]
     Indication: PRODUCT USED FOR UNKNOWN INDICATION
     Route: 065

REACTIONS (1)
  - Breast cancer recurrent [Unknown]
